FAERS Safety Report 8276643-4 (Version None)
Quarter: 2012Q2

REPORT INFORMATION
  Report Type: 
  Country: None (occurrence: None)
  Receive Date: 20120412
  Receipt Date: 20120411
  Transmission Date: 20120825
  Serious: Yes (Other)
  Sender: FDA-Public Use
  Company Number: PHHY2012BE030509

PATIENT
  Sex: Male
  Weight: 73 kg

DRUGS (5)
  1. CALCIUM CARBONATE [Concomitant]
     Indication: RENAL FAILURE
     Dosage: 3 G, DAILY
     Dates: start: 20091007, end: 20120326
  2. CREON [Concomitant]
     Indication: PANCREATIC DISORDER
     Dosage: AMYLASE 18000 U, LIPASE 25000 U, PROTEASE 1000 U)
     Dates: start: 20091021, end: 20120326
  3. SODIUM BICARBONATE [Concomitant]
     Indication: RENAL FAILURE
     Dosage: 3 G, DAILY
     Dates: start: 20091007, end: 20120326
  4. SANDOSTATIN LAR [Concomitant]
     Indication: PANCREATIC NEUROENDOCRINE TUMOUR
     Dosage: 30 MG, QMO
     Dates: start: 20090901
  5. AFINITOR [Suspect]
     Indication: PANCREATIC NEUROENDOCRINE TUMOUR
     Dosage: 10 MG, UNK
     Route: 048
     Dates: start: 20120208, end: 20120328

REACTIONS (6)
  - COUGH [None]
  - BLOOD CREATININE INCREASED [None]
  - MALAISE [None]
  - PYREXIA [None]
  - HAEMOGLOBIN DECREASED [None]
  - NIGHT SWEATS [None]
